FAERS Safety Report 23721293 (Version 1)
Quarter: 2024Q2

REPORT INFORMATION
  Report Type: Spontaneous
  Country: US (occurrence: US)
  Receive Date: 20240409
  Receipt Date: 20240409
  Transmission Date: 20240716
  Serious: No
  Sender: FDA-Public Use
  Company Number: US-BRISTOL-MYERS SQUIBB COMPANY-2024-055195

PATIENT
  Age: 40 Year
  Sex: Female

DRUGS (7)
  1. SPRYCEL [Suspect]
     Active Substance: DASATINIB
     Indication: Chronic myeloid leukaemia
     Dates: start: 20240329
  2. SUBOXONE [Concomitant]
     Active Substance: BUPRENORPHINE HYDROCHLORIDE\NALOXONE HYDROCHLORIDE
     Indication: Product used for unknown indication
  3. PHENERGAN [DIBROMPROPAMIDINE ISETIONATE;PROMETHAZINE] [Concomitant]
     Indication: Product used for unknown indication
  4. ALLOPURINOL [Concomitant]
     Active Substance: ALLOPURINOL
     Indication: Product used for unknown indication
  5. TROMETHAMINE [Concomitant]
     Active Substance: TROMETHAMINE
     Indication: Product used for unknown indication
  6. COLLAGEN PLUS [ASCORBIC ACID;COLLAGEN;TOCOPHERYL ACETATE] [Concomitant]
     Indication: Product used for unknown indication
  7. VITAMIN C [Concomitant]
     Active Substance: ASCORBIC ACID
     Indication: Product used for unknown indication

REACTIONS (3)
  - Rash [Not Recovered/Not Resolved]
  - Myalgia [Unknown]
  - Nausea [Unknown]
